FAERS Safety Report 5778443-3 (Version None)
Quarter: 2008Q2

REPORT INFORMATION
  Report Type: 
  Country: None (occurrence: None)
  Receive Date: 20080619
  Receipt Date: 20080610
  Transmission Date: 20081010
  Serious: Yes (Hospitalization)
  Sender: FDA-Public Use
  Company Number: SE-WYE-H04515108

PATIENT
  Sex: Female

DRUGS (4)
  1. CORDARONE [Suspect]
     Dosage: UNKNOWN
     Route: 048
     Dates: start: 20080310, end: 20080314
  2. WARFARIN SODIUM [Concomitant]
  3. CRESTOR [Concomitant]
  4. ENALAPRIL MALEATE [Concomitant]

REACTIONS (3)
  - NIGHTMARE [None]
  - PALPITATIONS [None]
  - VERTIGO [None]
